FAERS Safety Report 6213671-4 (Version None)
Quarter: 2009Q2

REPORT INFORMATION
  Report Type: 
  Country: None (occurrence: None)
  Receive Date: 20090601
  Receipt Date: 20090521
  Transmission Date: 20091009
  Serious: Yes (Other)
  Sender: FDA-Public Use
  Company Number: URSO-2009-065

PATIENT
  Age: 44 Year
  Sex: Male

DRUGS (1)
  1. URSO        (URSODEOXYCHOLIC ACID) [Suspect]
     Dosage: ORAL
     Route: 048

REACTIONS (1)
  - HEPATITIS ACUTE [None]
